FAERS Safety Report 20598635 (Version 2)
Quarter: 2022Q1

REPORT INFORMATION
  Report Type: Spontaneous
  Country: US (occurrence: None)
  Receive Date: 20220315
  Receipt Date: 20220315
  Transmission Date: 20220423
  Serious: No
  Sender: FDA-Public Use
  Company Number: US-ROCHE-2769288

PATIENT
  Age: 62 Year
  Sex: Male

DRUGS (15)
  1. XOLAIR [Suspect]
     Active Substance: OMALIZUMAB
     Indication: Asthma
     Dosage: ONGOING:YES
     Route: 058
     Dates: start: 20190816
  2. ACETAMINOPHEN\HYDROCODONE [Concomitant]
     Active Substance: ACETAMINOPHEN\HYDROCODONE
  3. IBUPROFEN [Concomitant]
     Active Substance: IBUPROFEN
  4. MONTELUKAST [Concomitant]
     Active Substance: MONTELUKAST SODIUM
  5. MUPIROCIN [Concomitant]
     Active Substance: MUPIROCIN
  6. ONDANSETRON [Concomitant]
     Active Substance: ONDANSETRON
  7. OXYBUTYNIN [Concomitant]
     Active Substance: OXYBUTYNIN
  8. ACETAMINOPHEN\OXYCODONE HYDROCHLORIDE [Concomitant]
     Active Substance: ACETAMINOPHEN\OXYCODONE HYDROCHLORIDE
  9. PREDNISONE [Concomitant]
     Active Substance: PREDNISONE
  10. ROSUVASTATIN [Concomitant]
     Active Substance: ROSUVASTATIN
  11. SULFAMETHOXAZOLE\TRIMETHOPRIM [Concomitant]
     Active Substance: SULFAMETHOXAZOLE\TRIMETHOPRIM
  12. TAMSULOSIN [Concomitant]
     Active Substance: TAMSULOSIN
  13. ALBUTEROL [Concomitant]
     Active Substance: ALBUTEROL
  14. BUDESONIDE [Concomitant]
     Active Substance: BUDESONIDE
  15. EPINEPHRINE [Concomitant]
     Active Substance: EPINEPHRINE

REACTIONS (1)
  - COVID-19 [Unknown]

NARRATIVE: CASE EVENT DATE: 20210101
